FAERS Safety Report 9826757 (Version 1)
Quarter: 2013Q4

REPORT INFORMATION
  Report Type: Spontaneous
  Country: US (occurrence: None)
  Receive Date: 20131120
  Receipt Date: 20131120
  Transmission Date: 20140711
  Serious: Yes (Hospitalization)
  Sender: FDA-Public Use
  Company Number: A-NJ2013-81926

PATIENT
  Age: 57 Year
  Sex: Female

DRUGS (2)
  1. VENTAVIS [Suspect]
     Indication: PULMONARY ARTERIAL HYPERTENSION
     Dosage: 5 MCG, 9 TIMES DAILY, RESPIRATORY
     Route: 055
     Dates: start: 20130308, end: 20130411
  2. ADCIRCA (TADALAFIL) [Concomitant]

REACTIONS (4)
  - Oxygen saturation decreased [None]
  - Lung infection [None]
  - Dyspnoea [None]
  - Oedema peripheral [None]
